FAERS Safety Report 6121750-5 (Version None)
Quarter: 2009Q1

REPORT INFORMATION
  Report Type: 
  Country: None (occurrence: None)
  Receive Date: 20090313
  Receipt Date: 20090313
  Transmission Date: 20090719
  Serious: Yes (Hospitalization)
  Sender: FDA-Public Use
  Company Number: None

PATIENT
  Age: 42 Year
  Sex: Male

DRUGS (2)
  1. GLYBURIDE [Suspect]
     Indication: DIABETES MELLITUS
     Dosage: 10 MG BID PO
     Route: 048
     Dates: start: 20090129, end: 20090310
  2. METFORMIN HCL [Suspect]
     Indication: DIABETES MELLITUS
     Dosage: 500 MG BID PO
     Route: 048
     Dates: start: 20090219, end: 20090310

REACTIONS (3)
  - CONFUSIONAL STATE [None]
  - HYPOGLYCAEMIA [None]
  - VITAMIN B12 DEFICIENCY [None]
